FAERS Safety Report 16246324 (Version 4)
Quarter: 2020Q2

REPORT INFORMATION
  Report Type: Spontaneous
  Country: US (occurrence: US)
  Receive Date: 20190426
  Receipt Date: 20200421
  Transmission Date: 20200713
  Serious: Yes (Other)
  Sender: FDA-Public Use
  Company Number: US-JNJFOC-20190421279

PATIENT
  Age: 32 Year
  Sex: Male

DRUGS (1)
  1. XARELTO [Suspect]
     Active Substance: RIVAROXABAN
     Indication: CEREBROVASCULAR ACCIDENT PROPHYLAXIS
     Route: 048
     Dates: start: 20181001, end: 20181215

REACTIONS (6)
  - Renal haemorrhage [Unknown]
  - Epistaxis [Unknown]
  - Haematemesis [Unknown]
  - Angioedema [Unknown]
  - Acute kidney injury [Unknown]
  - Haematochezia [Unknown]

NARRATIVE: CASE EVENT DATE: 201812
